FAERS Safety Report 10230440 (Version 2)
Quarter: 2014Q2

REPORT INFORMATION
  Report Type: Spontaneous
  Country: US (occurrence: US)
  Receive Date: 20140611
  Receipt Date: 20140611
  Transmission Date: 20141212
  Serious: No
  Sender: FDA-Public Use
  Company Number: US-INCYTE CORPORATION-2014IN000517

PATIENT
  Age: 72 Year
  Sex: Male
  Weight: 71.2 kg

DRUGS (1)
  1. JAKAFI [Suspect]
     Indication: MYELOFIBROSIS
     Dosage: 20 MG, BID
     Route: 048
     Dates: start: 20131121

REACTIONS (3)
  - Gout [Recovering/Resolving]
  - Asthenia [Unknown]
  - Malaise [Recovering/Resolving]
